FAERS Safety Report 19567972 (Version 4)
Quarter: 2021Q3

REPORT INFORMATION
  Report Type: Report from Study
  Country: None (occurrence: CA)
  Receive Date: 20210716
  Receipt Date: 20210804
  Transmission Date: 20211014
  Serious: Yes (Hospitalization, Other)
  Sender: FDA-Public Use
  Company Number: CA-ABBVIE-21K-028-3992394-00

PATIENT
  Sex: Male

DRUGS (1)
  1. SKYRIZI [Suspect]
     Active Substance: RISANKIZUMAB-RZAA
     Indication: PSORIASIS
     Route: 058
     Dates: start: 20200804, end: 20210512

REACTIONS (6)
  - Asthenia [Unknown]
  - Small intestinal obstruction [Recovering/Resolving]
  - Procedural pain [Not Recovered/Not Resolved]
  - Colon cancer [Not Recovered/Not Resolved]
  - Intestinal mass [Recovering/Resolving]
  - Unevaluable event [Not Recovered/Not Resolved]

NARRATIVE: CASE EVENT DATE: 2021
